FAERS Safety Report 12566797 (Version 1)
Quarter: 2016Q3

REPORT INFORMATION
  Report Type: Spontaneous
  Country: US (occurrence: US)
  Receive Date: 20160718
  Receipt Date: 20160718
  Transmission Date: 20161109
  Serious: Yes (Other)
  Sender: FDA-Public Use
  Company Number: US-ELI_LILLY_AND_COMPANY-US201607005577

PATIENT
  Age: 12 Year
  Sex: Male

DRUGS (12)
  1. OLANZAPINE. [Suspect]
     Active Substance: OLANZAPINE
     Indication: CATATONIA
  2. OLANZAPINE. [Suspect]
     Active Substance: OLANZAPINE
     Indication: DEPRESSION
  3. ARIPIPRAZOLE. [Suspect]
     Active Substance: ARIPIPRAZOLE
     Indication: PSYCHOTIC DISORDER
     Dosage: UNK, UNKNOWN
     Route: 065
  4. ATOMOXETINE HYDROCHLORIDE. [Suspect]
     Active Substance: ATOMOXETINE HYDROCHLORIDE
     Indication: ATTENTION DEFICIT/HYPERACTIVITY DISORDER
     Dosage: UNK, UNKNOWN
     Route: 065
  5. ARIPIPRAZOLE. [Suspect]
     Active Substance: ARIPIPRAZOLE
     Indication: DEPRESSION
  6. FLUOXETINE HYDROCHLORIDE. [Suspect]
     Active Substance: FLUOXETINE HYDROCHLORIDE
     Indication: INTRUSIVE THOUGHTS
  7. ARIPIPRAZOLE. [Suspect]
     Active Substance: ARIPIPRAZOLE
     Indication: CATATONIA
  8. ZIPRASIDONE. [Suspect]
     Active Substance: ZIPRASIDONE
     Indication: DEPRESSION
  9. OLANZAPINE. [Suspect]
     Active Substance: OLANZAPINE
     Indication: PSYCHOTIC DISORDER
     Dosage: UNK, UNKNOWN
     Route: 065
  10. FLUOXETINE HYDROCHLORIDE. [Suspect]
     Active Substance: FLUOXETINE HYDROCHLORIDE
     Indication: DEPRESSION
     Dosage: UNK, UNKNOWN
     Route: 065
  11. ZIPRASIDONE. [Suspect]
     Active Substance: ZIPRASIDONE
     Indication: PSYCHOTIC DISORDER
     Dosage: UNK, UNKNOWN
     Route: 065
  12. ZIPRASIDONE. [Suspect]
     Active Substance: ZIPRASIDONE
     Indication: CATATONIA

REACTIONS (9)
  - General physical health deterioration [Unknown]
  - Blood 25-hydroxycholecalciferol decreased [Unknown]
  - Blood copper decreased [Unknown]
  - Ceruloplasmin decreased [Unknown]
  - Tic [Unknown]
  - Insomnia [Unknown]
  - Catatonia [Unknown]
  - Tearfulness [Unknown]
  - Agitation [Unknown]
